FAERS Safety Report 17658099 (Version 3)
Quarter: 2021Q2

REPORT INFORMATION
  Report Type: Report from Study
  Country: US (occurrence: US)
  Receive Date: 20200411
  Receipt Date: 20210419
  Transmission Date: 20210716
  Serious: Yes (Death, Other)
  Sender: FDA-Public Use
  Company Number: NVSC2020US096412

PATIENT
  Age: 73 Year
  Sex: Male

DRUGS (2)
  1. TAFINLAR [Suspect]
     Active Substance: DABRAFENIB MESYLATE
     Indication: THYROID CANCER
     Dosage: 150 MG, BID
     Route: 048
  2. MEKINIST [Suspect]
     Active Substance: TRAMETINIB DIMETHYL SULFOXIDE
     Indication: THYROID CANCER
     Dosage: UNK
     Route: 065

REACTIONS (10)
  - Liver disorder [Unknown]
  - Fatigue [Unknown]
  - Blood test abnormal [Unknown]
  - Infection [Unknown]
  - Concomitant disease aggravated [Unknown]
  - Cardiac failure congestive [Unknown]
  - Dysstasia [Unknown]
  - Death [Fatal]
  - Blood pressure decreased [Unknown]
  - Photosensitivity reaction [Unknown]

NARRATIVE: CASE EVENT DATE: 20210320
